FAERS Safety Report 9140672 (Version 1)
Quarter: 2013Q1

REPORT INFORMATION
  Report Type: Spontaneous
  Country: US (occurrence: None)
  Receive Date: 20130227
  Receipt Date: 20130227
  Transmission Date: 20140127
  Serious: Yes (Death)
  Sender: FDA-Public Use
  Company Number: SYM-2013-00151

PATIENT
  Age: 58 Year
  Sex: Female

DRUGS (5)
  1. SALICYLATES (SALICYLIC ACID) [Suspect]
     Indication: PRODUCT USED FOR UNKNOWN INDICATION
     Dosage: NOT REPORTED,  ORAL
     Route: 048
  2. CARDIAC GLYCOSIDE [Suspect]
     Indication: PRODUCT USED FOR UNKNOWN INDICATION
     Dosage: NOT REPORTED,  ORAL
     Route: 048
  3. DULOXETINE (DULOXETINE) (DULOXETINE) [Suspect]
     Indication: PRODUCT USED FOR UNKNOWN INDICATION
     Dosage: NOT REPORTED,  ORAL
     Route: 048
  4. CLOPIDOGREL (CLOPIDOGREL) (CLOPIDOGREL) [Suspect]
     Indication: PRODUCT USED FOR UNKNOWN INDICATION
     Dosage: NOT REPORTED,  ORAL
     Route: 048
  5. OMEPRAZOLE (OMEPRAZOLE) (OMEPRAZOLE) [Suspect]
     Indication: PRODUCT USED FOR UNKNOWN INDICATION
     Dosage: NOT REPORTED,  ORAL
     Route: 048

REACTIONS (2)
  - Toxicity to various agents [None]
  - Completed suicide [None]
